FAERS Safety Report 10268824 (Version 1)
Quarter: 2014Q2

REPORT INFORMATION
  Report Type: Spontaneous
  Country: US (occurrence: US)
  Receive Date: 20140630
  Receipt Date: 20140630
  Transmission Date: 20141212
  Serious: Yes (Disabling)
  Sender: FDA-Public Use
  Company Number: US-BAXTER-2014BAX035153

PATIENT
  Sex: Male

DRUGS (4)
  1. GENTAMICIN SULFATE IN 0.9% SODIUM CHLORIDE INJECTION [Suspect]
     Indication: ENDOCARDITIS
     Route: 042
     Dates: start: 20080201, end: 20080328
  2. GENTAMICIN SULFATE IN 0.9% SODIUM CHLORIDE INJECTION [Suspect]
     Route: 042
     Dates: start: 20080329, end: 20080401
  3. AMPICILLIN [Suspect]
     Indication: ENDOCARDITIS
     Route: 042
     Dates: start: 20080201, end: 20080328
  4. AMPICILLIN [Suspect]
     Route: 042
     Dates: start: 20080329, end: 20080401

REACTIONS (2)
  - Balance disorder [Not Recovered/Not Resolved]
  - Hearing impaired [Not Recovered/Not Resolved]
